FAERS Safety Report 18717040 (Version 1)
Quarter: 2021Q1

REPORT INFORMATION
  Report Type: Spontaneous
  Country: US (occurrence: US)
  Receive Date: 20210107
  Receipt Date: 20210107
  Transmission Date: 20210419
  Serious: Yes (Other)
  Sender: FDA-Public Use
  Company Number: None

PATIENT
  Age: 53 Year
  Sex: Female

DRUGS (5)
  1. BUMEX [Concomitant]
     Active Substance: BUMETANIDE
  2. SILDENAFIL 20 MG TABS [Suspect]
     Active Substance: SILDENAFIL
     Indication: LUNG DISORDER
     Route: 048
     Dates: start: 20191129
  3. VITAMIN D3/C [Concomitant]
  4. ASPIRIN. [Concomitant]
     Active Substance: ASPIRIN
  5. NITROSTAT [Concomitant]
     Active Substance: NITROGLYCERIN

REACTIONS (2)
  - Myocardial infarction [None]
  - Cerebrovascular accident [None]

NARRATIVE: CASE EVENT DATE: 20210106
